FAERS Safety Report 6822593-7 (Version None)
Quarter: 2010Q3

REPORT INFORMATION
  Report Type: 
  Country: None (occurrence: None)
  Receive Date: 20100708
  Receipt Date: 20100629
  Transmission Date: 20110219
  Serious: Yes (Death)
  Sender: FDA-Public Use
  Company Number: GB-ELI_LILLY_AND_COMPANY-GB201006007509

PATIENT
  Sex: Female

DRUGS (4)
  1. PROZAC [Suspect]
  2. ALCOHOL [Concomitant]
  3. AMITRIPTYLINE [Concomitant]
  4. CIPRALEX [Concomitant]
     Dosage: 10 MG, UNK
     Route: 048

REACTIONS (4)
  - ALCOHOL ABUSE [None]
  - DEATH [None]
  - DRUG INTERACTION [None]
  - INTENTIONAL DRUG MISUSE [None]
